FAERS Safety Report 14345554 (Version 1)
Quarter: 2017Q4

REPORT INFORMATION
  Report Type: Spontaneous
  Country: US (occurrence: US)
  Receive Date: 20171230
  Receipt Date: 20171230
  Transmission Date: 20180321
  Serious: No
  Sender: FDA-Public Use
  Company Number: None

PATIENT
  Age: 47 Year
  Sex: Female

DRUGS (1)
  1. AVONEX [Suspect]
     Active Substance: INTERFERON BETA-1A
     Indication: MULTIPLE SCLEROSIS
     Route: 030
     Dates: start: 20170210

REACTIONS (6)
  - Dyspnoea [None]
  - Cough [None]
  - Pleurisy [None]
  - Chest pain [None]
  - Viral infection [None]
  - Wheezing [None]

NARRATIVE: CASE EVENT DATE: 20171128
